FAERS Safety Report 6886380-6 (Version None)
Quarter: 2010Q3

REPORT INFORMATION
  Report Type: 
  Country: None (occurrence: None)
  Receive Date: 20100729
  Receipt Date: 20090501
  Transmission Date: 20110219
  Serious: Yes (Other)
  Sender: FDA-Public Use
  Company Number: US-PFIZER INC-2008074585

PATIENT
  Sex: Female
  Weight: 91 kg

DRUGS (3)
  1. CELEBREX [Suspect]
     Indication: OSTEOARTHRITIS
  2. CELEBREX [Suspect]
     Indication: CALCINOSIS
  3. MULTI-VITAMINS [Concomitant]

REACTIONS (9)
  - DRUG INEFFECTIVE [None]
  - ERYTHEMA OF EYELID [None]
  - EYELID EXFOLIATION [None]
  - EYELID OEDEMA [None]
  - FOOT FRACTURE [None]
  - LIP DRY [None]
  - LIP SWELLING [None]
  - LIVER FUNCTION TEST ABNORMAL [None]
  - PRURITUS [None]
